FAERS Safety Report 4544665-2 (Version None)
Quarter: 2004Q4

REPORT INFORMATION
  Report Type: 
  Country: None (occurrence: None)
  Receive Date: 20041230
  Receipt Date: 20041219
  Transmission Date: 20050328
  Serious: Yes (Hospitalization)
  Sender: FDA-Public Use
  Company Number: BR-JNJFOC-20041206363

PATIENT
  Age: 22 Year
  Sex: Female
  Weight: 50 kg

DRUGS (5)
  1. TYLENOL [Suspect]
     Indication: SUICIDE ATTEMPT
     Dosage: 2 G, 1 IN 1 TOTAL
     Dates: start: 20041219, end: 20041219
  2. FLUOXETINE [Suspect]
     Indication: SUICIDE ATTEMPT
     Dosage: 560 MG, 1 IN 1 TOTAL, ORAL
     Route: 048
     Dates: start: 20041219, end: 20041219
  3. SERTRALINE HCL [Suspect]
     Indication: SUICIDE ATTEMPT
     Dosage: ENTIRE BLISTER
     Dates: start: 20041219, end: 20041219
  4. BRAMAZEPAM (ALL OTHER THERAPEUTIC PRODUCTS) [Suspect]
     Indication: SUICIDE ATTEMPT
     Dosage: 12 MG, 1 IN 1 TOTAL, ORAL
     Route: 048
     Dates: start: 20041219, end: 20041219
  5. ASPIRIN [Suspect]
     Indication: SUICIDE ATTEMPT
     Dosage: 2 G, 1 IN 1 TOTAL, ORAL
     Route: 048
     Dates: start: 20041219, end: 20041219

REACTIONS (3)
  - MULTIPLE DRUG OVERDOSE [None]
  - SOMNOLENCE [None]
  - SUICIDE ATTEMPT [None]
